FAERS Safety Report 13401415 (Version 3)
Quarter: 2017Q2

REPORT INFORMATION
  Report Type: Report from Study
  Country: US (occurrence: US)
  Receive Date: 20170404
  Receipt Date: 20170531
  Transmission Date: 20170830
  Serious: Yes (Hospitalization, Other)
  Sender: FDA-Public Use
  Company Number: US-GILEAD-2017-0265523

PATIENT
  Age: 10 Year
  Sex: Male

DRUGS (2)
  1. AZTREONAM LYSINE [Suspect]
     Active Substance: AZTREONAM LYSINE
     Dosage: 75 MG, UNK
     Route: 055
     Dates: end: 201702
  2. AZTREONAM LYSINE [Suspect]
     Active Substance: AZTREONAM LYSINE
     Indication: CYSTIC FIBROSIS
     Dosage: 75 MG, UNK
     Route: 055
     Dates: start: 20151012, end: 201703

REACTIONS (5)
  - Staphylococcal infection [Unknown]
  - Respiratory tract infection bacterial [Unknown]
  - Lung disorder [Unknown]
  - Pulmonary function test decreased [Unknown]
  - Asthma [Unknown]
